FAERS Safety Report 5768789-7 (Version None)
Quarter: 2008Q2

REPORT INFORMATION
  Report Type: 
  Country: None (occurrence: None)
  Receive Date: 20080612
  Receipt Date: 20080311
  Transmission Date: 20081010
  Serious: No
  Sender: FDA-Public Use
  Company Number: US-ABBOTT-08P-163-0442257-00

PATIENT
  Sex: Female
  Weight: 129.39 kg

DRUGS (11)
  1. HUMIRA [Suspect]
     Indication: RHEUMATOID ARTHRITIS
     Route: 058
     Dates: start: 20070601, end: 20080204
  2. METHOTREXATE [Concomitant]
     Indication: RHEUMATOID ARTHRITIS
     Route: 048
  3. RELAFEN [Concomitant]
     Indication: RHEUMATOID ARTHRITIS
     Route: 048
  4. ESCITALOPRAM OXALATE [Concomitant]
     Indication: DEPRESSION
     Route: 048
  5. PROPACET 100 [Concomitant]
     Indication: PAIN
     Route: 048
  6. MONTELUKAST SODIUM [Concomitant]
     Indication: ASTHMA
     Route: 048
  7. HYDROCHLOROTHIAZIDE [Concomitant]
     Indication: HYPERTENSION
     Route: 048
  8. METHOCARBAMOL [Concomitant]
     Indication: MUSCLE RELAXANT THERAPY
     Route: 048
  9. ZOLPIDEM TARTRATE [Concomitant]
     Indication: INSOMNIA
     Route: 048
  10. TRAZODONE HCL [Concomitant]
     Indication: INSOMNIA
     Route: 048
  11. SIMVASTATIN [Concomitant]
     Indication: BLOOD CHOLESTEROL INCREASED
     Route: 048

REACTIONS (2)
  - INFLUENZA LIKE ILLNESS [None]
  - NASOPHARYNGITIS [None]
